FAERS Safety Report 4285115-3 (Version None)
Quarter: 2004Q1

REPORT INFORMATION
  Report Type: 
  Country: None (occurrence: None)
  Receive Date: 20040204
  Receipt Date: 20040115
  Transmission Date: 20041129
  Serious: Yes (Death)
  Sender: FDA-Public Use
  Company Number: FR-GLAXOSMITHKLINE-B0320041A

PATIENT
  Age: 2 Day
  Sex: Female
  Weight: 3.2 kg

DRUGS (2)
  1. RETROVIR [Suspect]
     Indication: ANTIVIRAL PROPHYLAXIS
     Dosage: 6MG FOUR TIMES PER DAY
     Route: 048
     Dates: start: 20031028, end: 20031029
  2. COMBIVIR [Suspect]
     Indication: HIV INFECTION
     Dates: start: 20030901, end: 20031027

REACTIONS (5)
  - DEATH [None]
  - DRUG EXPOSURE DURING PREGNANCY [None]
  - HEPATIC SIDEROSIS [None]
  - MITOCHONDRIAL CYTOPATHY [None]
  - SPLEEN DISORDER [None]
